FAERS Safety Report 7826044-5 (Version None)
Quarter: 2011Q4

REPORT INFORMATION
  Report Type: 
  Country: None (occurrence: None)
  Receive Date: 20111019
  Receipt Date: 20111010
  Transmission Date: 20120403
  Serious: Yes (Other)
  Sender: FDA-Public Use
  Company Number: US-ASTRAZENECA-2011SE55193

PATIENT
  Age: 79 Year
  Sex: Male
  Weight: 147 kg

DRUGS (23)
  1. ASCORBIC ACID [Concomitant]
  2. ASPIRIN [Concomitant]
  3. POTASSIUM [Concomitant]
     Dosage: PRN
     Dates: start: 20061201
  4. ALBUTEROL SULPHADE [Concomitant]
     Indication: DYSPNOEA
  5. VITAMIN B COMPLEX CAP [Concomitant]
     Dosage: DAILY
  6. SYMBICORT [Suspect]
     Indication: DYSPNOEA
     Dosage: 80/4.5 1 PUFF TWO TIMES DAILY
     Route: 055
     Dates: start: 20090522
  7. LISINOPRIL [Suspect]
     Route: 048
     Dates: start: 20110727, end: 20110830
  8. GAS X [Concomitant]
     Dosage: PRN
  9. COUMADIN [Concomitant]
     Dosage: 1 TABLET DAILY ON TUESDAY, THURSDAY, SATURDAY, SUNDAY
  10. COLCHICINE [Concomitant]
     Indication: GOUT
  11. COMBIVENT [Concomitant]
     Dosage: DAILY AS NEEDED NOT TO EXCEED 5-6 P/DAY
  12. IPRATROPIUM BROMIDE [Concomitant]
  13. SYMBICORT [Suspect]
     Dosage: 80/4.5 1 PUFF DAILY
     Route: 055
     Dates: start: 20110707, end: 20110714
  14. COUMADIN [Concomitant]
     Dosage: 1-1/2 TABLET ON MONDAY, WEDNESDAY, FRIDAY
  15. SYMBICORT [Suspect]
     Dosage: 80/4.5 1 PUFF TWO TIMES DAILY
     Route: 055
     Dates: start: 20110714
  16. FISH OIL [Concomitant]
  17. ALBUTEROL SULPHADE [Concomitant]
  18. TONIC [Concomitant]
     Dosage: PRN
  19. SINGULAIR [Concomitant]
     Indication: DYSPNOEA
  20. LISINOPRIL [Suspect]
     Indication: BLOOD PRESSURE
     Route: 048
     Dates: start: 20090224, end: 20110701
  21. LISINOPRIL [Suspect]
     Route: 048
     Dates: start: 20110831
  22. NITROGLYCERIN [Concomitant]
  23. COLCHICINE [Concomitant]

REACTIONS (11)
  - MELANOCYTIC NAEVUS [None]
  - HYPOAESTHESIA [None]
  - GASTROOESOPHAGEAL REFLUX DISEASE [None]
  - CHRONIC OBSTRUCTIVE PULMONARY DISEASE [None]
  - CHOKING [None]
  - PRURITUS [None]
  - PERIPHERAL COLDNESS [None]
  - DYSPNOEA [None]
  - LOSS OF CONSCIOUSNESS [None]
  - COUGH [None]
  - ASTHENIA [None]
